FAERS Safety Report 8708134 (Version 3)
Quarter: 2013Q1

REPORT INFORMATION
  Report Type: Report from Study
  Country: DE (occurrence: DE)
  Receive Date: 20120806
  Receipt Date: 20130312
  Transmission Date: 20140127
  Serious: Yes (Death, Hospitalization)
  Sender: FDA-Public Use
  Company Number: DE-SANOFI-AVENTIS-2012SA055132

PATIENT
  Age: 83 Year
  Sex: Male
  Weight: 65 kg

DRUGS (9)
  1. JEVTANA [Suspect]
     Indication: HORMONE-REFRACTORY PROSTATE CANCER
     Route: 051
     Dates: start: 20120314, end: 20120314
  2. JEVTANA [Suspect]
     Indication: HORMONE-REFRACTORY PROSTATE CANCER
     Route: 042
     Dates: start: 20120627, end: 20120627
  3. PREDNISOLON [Concomitant]
     Indication: PREMEDICATION
     Route: 048
     Dates: start: 2012, end: 2012
  4. NEULASTA [Concomitant]
     Indication: PREMEDICATION
     Dates: start: 2012, end: 2012
  5. GRANISETRON [Concomitant]
     Dates: start: 2012, end: 2012
  6. CLEMASTINE [Concomitant]
     Indication: PREMEDICATION
     Route: 042
     Dates: start: 2012, end: 2012
  7. DEXAMETHASONE [Concomitant]
     Indication: PREMEDICATION
     Dates: start: 2012, end: 2012
  8. RANITIDINE [Concomitant]
     Indication: PROPHYLAXIS
     Route: 042
     Dates: start: 2012, end: 2012
  9. ZOMETA [Concomitant]
     Indication: PREMEDICATION
     Dates: start: 2012, end: 2012

REACTIONS (3)
  - Pneumonia [Fatal]
  - General physical health deterioration [Not Recovered/Not Resolved]
  - Blood glucose abnormal [Unknown]
